FAERS Safety Report 13676573 (Version 2)
Quarter: 2017Q3

REPORT INFORMATION
  Report Type: Spontaneous
  Country: US (occurrence: US)
  Receive Date: 20170622
  Receipt Date: 20170801
  Transmission Date: 20171127
  Serious: Yes (Life-Threatening, Hospitalization, Other)
  Sender: FDA-Public Use
  Company Number: US-AUROBINDO-AUR-APL-2017-35601

PATIENT
  Age: 14 Year
  Sex: Male

DRUGS (4)
  1. OLANZAPINE. [Suspect]
     Active Substance: OLANZAPINE
     Indication: SCHIZOPHRENIFORM DISORDER
     Route: 065
  2. CHLORPROMAZINE. [Suspect]
     Active Substance: CHLORPROMAZINE
     Indication: SCHIZOPHRENIFORM DISORDER
     Route: 065
  3. VALPROIC ACID. [Suspect]
     Active Substance: VALPROIC ACID
  4. RISPERIDONE. [Suspect]
     Active Substance: RISPERIDONE
     Indication: SCHIZOPHRENIFORM DISORDER
     Route: 065

REACTIONS (11)
  - Neuroleptic malignant syndrome [Recovered/Resolved]
  - Confusional state [Recovered/Resolved]
  - Alanine aminotransferase increased [Recovered/Resolved]
  - Catatonia [Recovered/Resolved]
  - Grandiosity [Recovered/Resolved]
  - Aspartate aminotransferase increased [Recovered/Resolved]
  - Distractibility [Recovered/Resolved]
  - Psychomotor hyperactivity [Recovered/Resolved]
  - Blood creatine phosphokinase increased [Recovered/Resolved]
  - Abnormal behaviour [Recovered/Resolved]
  - Pressure of speech [Recovered/Resolved]
